FAERS Safety Report 21082046 (Version 1)
Quarter: 2022Q3

REPORT INFORMATION
  Report Type: Other
  Country: US (occurrence: None)
  Receive Date: 20220714
  Receipt Date: 20220714
  Transmission Date: 20221027
  Serious: No
  Sender: FDA-Public Use
  Company Number: US-ROCHE-3139864

PATIENT
  Age: 40 Year
  Sex: Female

DRUGS (1)
  1. OCREVUS [Suspect]
     Active Substance: OCRELIZUMAB
     Indication: Multiple sclerosis
     Dosage: YES?300 MG ON DAY 1 AND DAY 15 THEN 600 MG EVERY 6 MONTHS?ANTICIPATED DATE OF TREATMENT: 16/JAN/2020
     Route: 065
     Dates: start: 20200102

REACTIONS (2)
  - COVID-19 [Recovered/Resolved]
  - Fatigue [Unknown]

NARRATIVE: CASE EVENT DATE: 20211101
